FAERS Safety Report 8353544-4 (Version None)
Quarter: 2012Q2

REPORT INFORMATION
  Report Type: 
  Country: None (occurrence: None)
  Receive Date: 20120511
  Receipt Date: 20110519
  Transmission Date: 20120825
  Serious: No
  Sender: FDA-Public Use
  Company Number: US-GLAXOSMITHKLINE-A0929567A

PATIENT
  Age: 58 Year
  Sex: Female
  Weight: 56.4 kg

DRUGS (2)
  1. TYKERB [Suspect]
     Indication: PRODUCT USED FOR UNKNOWN INDICATION
     Dosage: 1000MG PER DAY
     Route: 048
     Dates: start: 19991001
  2. MULTI-VITAMIN [Concomitant]

REACTIONS (3)
  - SKIN CHAPPED [None]
  - DIARRHOEA [None]
  - DECREASED APPETITE [None]
